FAERS Safety Report 6325999-8 (Version None)
Quarter: 2009Q3

REPORT INFORMATION
  Report Type: 
  Country: None (occurrence: None)
  Receive Date: 20090824
  Receipt Date: 20090813
  Transmission Date: 20100115
  Serious: Yes (Other)
  Sender: FDA-Public Use
  Company Number: NSADSS2002031080

PATIENT
  Sex: Female

DRUGS (17)
  1. REMICADE [Suspect]
     Route: 041
     Dates: start: 20000209
  2. REMICADE [Suspect]
     Route: 041
     Dates: start: 20000209
  3. REMICADE [Suspect]
     Route: 041
     Dates: start: 20000209
  4. REMICADE [Suspect]
     Indication: RHEUMATOID ARTHRITIS
     Route: 041
     Dates: start: 20000209
  5. SYNTHROID [Concomitant]
     Dates: start: 19920101
  6. FOSAMAX [Concomitant]
     Dates: start: 19970101
  7. FOSAMAX [Concomitant]
     Dates: start: 19970101
  8. LITHIUM CARBONATE [Concomitant]
     Dates: start: 19990101
  9. METHOTREXATE [Concomitant]
     Dates: start: 19990801
  10. METHOTREXATE [Concomitant]
     Dates: start: 19990801
  11. METHOTREXATE [Concomitant]
     Dates: start: 19990801
  12. ZOCOR [Concomitant]
     Dates: start: 20020401
  13. FOLIC ACID [Concomitant]
     Dates: start: 19991101
  14. NABUMETONE [Concomitant]
     Dates: start: 19990801
  15. VALIUM [Concomitant]
     Dates: start: 19990801
  16. PREDNISONE TAB [Concomitant]
  17. CALCIUM WITH VITAMIN D [Concomitant]

REACTIONS (4)
  - LABORATORY TEST ABNORMAL [None]
  - LARGE GRANULAR LYMPHOCYTOSIS [None]
  - LYMPHOCYTIC LEUKAEMIA [None]
  - NEUTROPENIA [None]
